FAERS Safety Report 7211778-6 (Version None)
Quarter: 2011Q1

REPORT INFORMATION
  Report Type: 
  Country: None (occurrence: None)
  Receive Date: 20110105
  Receipt Date: 20101229
  Transmission Date: 20110831
  Serious: Yes (Disabling)
  Sender: FDA-Public Use
  Company Number: DE-B.I. PHARMACEUTICALS,INC./RIDGEFIELD-2010-DE-07225DE

PATIENT
  Age: 25 Year
  Sex: Female
  Weight: 56.1 kg

DRUGS (4)
  1. VIRAMUNE [Suspect]
     Indication: HIV INFECTION
     Dosage: 200 MG
     Route: 048
     Dates: start: 20100913, end: 20101007
  2. TRUVADA [Concomitant]
     Indication: HIV INFECTION
     Dosage: 1 ANZ
     Route: 048
     Dates: start: 20100913
  3. COTRIM [Concomitant]
     Indication: TOXOPLASMOSIS PROPHYLAXIS
  4. COTRIM [Concomitant]
     Indication: ANTIFUNGAL PROPHYLAXIS
     Dosage: 1 ANZ
     Route: 048
     Dates: start: 20100906, end: 20101111

REACTIONS (4)
  - RASH [None]
  - OEDEMA PERIPHERAL [None]
  - HEPATOTOXICITY [None]
  - SWELLING [None]
